FAERS Safety Report 25234770 (Version 1)
Quarter: 2025Q2

REPORT INFORMATION
  Report Type: Spontaneous
  Country: CA (occurrence: CA)
  Receive Date: 20250424
  Receipt Date: 20250424
  Transmission Date: 20250716
  Serious: Yes (Other)
  Sender: CELLTRION
  Company Number: CA-PFIZER INC-202500083173

PATIENT

DRUGS (16)
  1. INFLECTRA [Suspect]
     Active Substance: INFLIXIMAB-DYYB
     Indication: Colitis ulcerative
     Route: 042
     Dates: start: 20250311
  2. INFLECTRA [Suspect]
     Active Substance: INFLIXIMAB-DYYB
     Route: 042
     Dates: start: 20250415
  3. PREDNISONE [Concomitant]
     Active Substance: PREDNISONE
     Route: 065
     Dates: start: 20220121
  4. CALCIUM [Concomitant]
     Active Substance: CALCIUM
     Route: 048
  5. OXAZEPAM [Concomitant]
     Active Substance: OXAZEPAM
  6. ONDANSETRON [Concomitant]
     Active Substance: ONDANSETRON
  7. LORAZEPAM [Concomitant]
     Active Substance: LORAZEPAM
  8. SYNTHROID [Concomitant]
     Active Substance: LEVOTHYROXINE SODIUM
  9. DOXAZOSIN [Concomitant]
     Active Substance: DOXAZOSIN MESYLATE
  10. INDAPAMIDE [Concomitant]
     Active Substance: INDAPAMIDE
  11. PREGABALIN [Concomitant]
     Active Substance: PREGABALIN
  12. BISOPROLOL [Concomitant]
     Active Substance: BISOPROLOL
  13. ROSUVASTATIN [Concomitant]
     Active Substance: ROSUVASTATIN
  14. ROSUVASTATIN [Concomitant]
     Active Substance: ROSUVASTATIN
  15. PANTOPRAZOLE [Concomitant]
     Active Substance: PANTOPRAZOLE
  16. TOPISONE [Concomitant]

REACTIONS (1)
  - Rotator cuff syndrome [Recovered/Resolved]

NARRATIVE: CASE EVENT DATE: 20250301
